FAERS Safety Report 7335555-0 (Version None)
Quarter: 2011Q1

REPORT INFORMATION
  Report Type: 
  Country: None (occurrence: None)
  Receive Date: 20110307
  Receipt Date: 20110225
  Transmission Date: 20110831
  Serious: Yes (Other)
  Sender: FDA-Public Use
  Company Number: FR-PFIZER INC-2011042540

PATIENT
  Age: 56 Year
  Sex: Female

DRUGS (5)
  1. TAHOR [Suspect]
     Indication: BLOOD TRIGLYCERIDES
  2. GAVISCON [Concomitant]
  3. ATARAX [Concomitant]
  4. TAHOR [Suspect]
     Indication: BLOOD CHOLESTEROL INCREASED
     Dosage: 40 MG
  5. MOPRAL [Concomitant]
     Indication: ABDOMINAL PAIN UPPER

REACTIONS (6)
  - TINNITUS [None]
  - FATIGUE [None]
  - NIGHTMARE [None]
  - ANXIETY [None]
  - TACHYCARDIA [None]
  - ABDOMINAL PAIN UPPER [None]
